FAERS Safety Report 21238703 (Version 1)
Quarter: 2022Q3

REPORT INFORMATION
  Report Type: Spontaneous
  Country: US (occurrence: US)
  Receive Date: 20220822
  Receipt Date: 20220822
  Transmission Date: 20221027
  Serious: No
  Sender: FDA-Public Use
  Company Number: US-BRISTOL-MYERS SQUIBB COMPANY-2022-092880

PATIENT
  Age: 71 Year
  Sex: Female
  Weight: 58.967 kg

DRUGS (1)
  1. POMALYST [Suspect]
     Active Substance: POMALIDOMIDE
     Indication: Plasma cell myeloma
     Dosage: FREQUENCY : D1 -21  Q 28 DAYS
     Route: 048
     Dates: start: 20220622

REACTIONS (1)
  - White blood cell count decreased [Not Recovered/Not Resolved]
